FAERS Safety Report 18086254 (Version 5)
Quarter: 2020Q3

REPORT INFORMATION
  Report Type: Spontaneous
  Country: US (occurrence: US)
  Receive Date: 20200728
  Receipt Date: 20200810
  Transmission Date: 20201103
  Serious: Yes (Hospitalization, Other)
  Sender: FDA-Public Use
  Company Number: US-CELLTRION INC.-2020US024585

PATIENT

DRUGS (4)
  1. BENDEKA [Suspect]
     Active Substance: BENDAMUSTINE HYDROCHLORIDE
     Dosage: 141 MG IVPB IN 50ML NS DAY 2
     Route: 042
     Dates: start: 20200708
  2. TRUXIMA [Suspect]
     Active Substance: RITUXIMAB-ABBS
     Dosage: (500MG VIAL) 589MG IVPB IN 500ML NS DAY 1
     Route: 042
     Dates: start: 20200707
  3. BENDEKA [Suspect]
     Active Substance: BENDAMUSTINE HYDROCHLORIDE
     Indication: B-CELL LYMPHOMA
     Dosage: 141 MG IVPB IN 50ML NS DAY 1
     Route: 042
     Dates: start: 20200707
  4. TRUXIMA [Suspect]
     Active Substance: RITUXIMAB-ABBS
     Indication: B-CELL LYMPHOMA
     Dosage: (100MG VIAL) 589MG IVPB IN 500ML NS DAY 1
     Route: 042
     Dates: start: 20200707

REACTIONS (2)
  - Hepatotoxicity [Recovered/Resolved]
  - Intentional overdose [Unknown]

NARRATIVE: CASE EVENT DATE: 20200720
